FAERS Safety Report 9779074 (Version 2)
Quarter: 2014Q1

REPORT INFORMATION
  Report Type: Spontaneous
  Country: US (occurrence: US)
  Receive Date: 20131223
  Receipt Date: 20140128
  Transmission Date: 20141002
  Serious: Yes (Hospitalization, Other)
  Sender: FDA-Public Use
  Company Number: US-RB-061694-13

PATIENT
  Age: 29 Year
  Sex: Female

DRUGS (17)
  1. SUBOXONE FILM [Suspect]
     Indication: DRUG DEPENDENCE
     Dosage: SUBOXONE FILM
     Route: 060
     Dates: start: 2010
  2. SUBOXONE FILM [Suspect]
     Dosage: SUBOXONE FILM
     Route: 060
  3. SUBUTEX [Suspect]
     Indication: DRUG DEPENDENCE
     Route: 060
  4. SUBUTEX [Suspect]
     Route: 060
  5. BUPRENORPHINE GENERIC [Suspect]
     Indication: DRUG DEPENDENCE
     Route: 060
     Dates: end: 201311
  6. BUPRENORPHINE GENERIC [Suspect]
     Dosage: 2 AND 1/2 TABLETS DAILY
     Route: 065
  7. BUPRENORPHINE/NALOXONE GENERIC [Suspect]
     Indication: DRUG DEPENDENCE
     Route: 060
     Dates: start: 201311
  8. WELLBUTRIN [Concomitant]
     Indication: DEPRESSION
     Dosage: DOSING DETAILS UNKNOWN; TAKEN DAILY
     Route: 048
  9. WELLBUTRIN [Concomitant]
     Indication: DEPRESSION
     Dosage: DOSING DETAILS UNKNOWN; TAKEN DAILY
     Route: 048
  10. TRAZODONE [Concomitant]
     Indication: SLEEP DISORDER
     Route: 048
  11. ROZEREM [Concomitant]
     Indication: SLEEP DISORDER
     Dosage: DOSING DETAILS UNKNOWN; TAKEN DAILY
     Route: 048
  12. ROZEREM [Concomitant]
     Indication: ATTENTION DEFICIT/HYPERACTIVITY DISORDER
     Dosage: DOSING DETAILS UNKNOWN; TAKEN DAILY
     Route: 048
  13. ROZEREM [Concomitant]
     Indication: BIPOLAR DISORDER
     Dosage: DOSING DETAILS UNKNOWN; TAKEN DAILY
     Route: 048
  14. ROZEREM [Concomitant]
     Indication: OBSESSIVE-COMPULSIVE DISORDER
     Dosage: DOSING DETAILS UNKNOWN; TAKEN DAILY
     Route: 048
  15. BACTRIM [Concomitant]
     Indication: INFECTION PROPHYLAXIS
     Dosage: DOSING DETAILS UNKNOWN; TAKEN DAILY
     Route: 048
  16. KLONOPIN [Concomitant]
     Indication: ANXIETY
     Dosage: DOSING DETAILS UNKNOWN; TAKEN DAILY
     Route: 048
  17. CHILDREN^S VITAMIN [Concomitant]
     Indication: VITAMIN SUPPLEMENTATION
     Dosage: DOSING DETAILS UNKNOWN; TAKEN DAILY
     Route: 048

REACTIONS (6)
  - Wrong technique in drug usage process [Not Recovered/Not Resolved]
  - Tongue blistering [Recovered/Resolved]
  - Endocarditis [Not Recovered/Not Resolved]
  - Pulmonary embolism [Not Recovered/Not Resolved]
  - Pneumonia [Unknown]
  - Migraine [Not Recovered/Not Resolved]
